FAERS Safety Report 24733833 (Version 2)
Quarter: 2025Q1

REPORT INFORMATION
  Report Type: Spontaneous
  Country: JP (occurrence: JP)
  Receive Date: 20241214
  Receipt Date: 20250109
  Transmission Date: 20250408
  Serious: Yes (Other)
  Sender: JOHNSON AND JOHNSON
  Company Number: JP-NShinyaku-EVA20240863901001307081

PATIENT
  Age: 18 Year
  Sex: Female

DRUGS (2)
  1. UPTRAVI [Suspect]
     Active Substance: SELEXIPAG
     Indication: Portopulmonary hypertension
     Dosage: INCREASED
     Route: 048
  2. UPTRAVI [Suspect]
     Active Substance: SELEXIPAG
     Dosage: INCREASED
     Route: 048

REACTIONS (3)
  - Pulmonary haemorrhage [Unknown]
  - Loss of personal independence in daily activities [Unknown]
  - Nausea [Unknown]
